FAERS Safety Report 20508272 (Version 2)
Quarter: 2022Q1

REPORT INFORMATION
  Report Type: Spontaneous
  Country: CA (occurrence: CA)
  Receive Date: 20220223
  Receipt Date: 20220225
  Transmission Date: 20220424
  Serious: Yes (Death, Other)
  Sender: FDA-Public Use
  Company Number: CA-NAPPMUNDI-GBR-2022-0095152

PATIENT
  Age: 11 Year
  Sex: Male
  Weight: 25 kg

DRUGS (15)
  1. HYDROMORPHONE HYDROCHLORIDE [Suspect]
     Active Substance: HYDROMORPHONE HYDROCHLORIDE
     Indication: Pain
     Dosage: UNKNOWN
     Route: 065
  2. CANNABIDIOL [Suspect]
     Active Substance: CANNABIDIOL
     Indication: Pain
     Dosage: UNK
     Route: 065
  3. CANNABIDIOL [Suspect]
     Active Substance: CANNABIDIOL
     Indication: Nausea
  4. DEXAMETHASONE SODIUM PHOSPHATE [Suspect]
     Active Substance: DEXAMETHASONE SODIUM PHOSPHATE
     Indication: Neoplasm progression
     Dosage: UNK
     Route: 065
  5. DINUTUXIMAB [Suspect]
     Active Substance: DINUTUXIMAB
     Indication: Neuroblastoma recurrent
     Dosage: UNK
     Route: 065
  6. DINUTUXIMAB [Suspect]
     Active Substance: DINUTUXIMAB
     Indication: Metastases to liver
     Dosage: UNK, CYCLICAL
     Route: 042
  7. DINUTUXIMAB [Suspect]
     Active Substance: DINUTUXIMAB
     Indication: Metastases to bone
     Dosage: UNK
     Route: 065
  8. FAMOTIDINE [Suspect]
     Active Substance: FAMOTIDINE
     Indication: Gastric disorder
     Dosage: UNK
     Route: 065
  9. GABAPENTIN [Suspect]
     Active Substance: GABAPENTIN
     Indication: Pain
     Dosage: UNK
     Route: 065
  10. IRINOTECAN HYDROCHLORIDE [Suspect]
     Active Substance: IRINOTECAN HYDROCHLORIDE
     Indication: Neuroblastoma recurrent
     Dosage: UNK
     Route: 065
  11. IRINOTECAN HYDROCHLORIDE [Suspect]
     Active Substance: IRINOTECAN HYDROCHLORIDE
     Dosage: UNK
     Route: 065
  12. LORAZEPAM [Suspect]
     Active Substance: LORAZEPAM
     Indication: Anxiety
     Dosage: UNK
     Route: 042
  13. LORAZEPAM [Suspect]
     Active Substance: LORAZEPAM
     Dosage: UNK
     Route: 065
  14. METHADONE HYDROCHLORIDE [Suspect]
     Active Substance: METHADONE HYDROCHLORIDE
     Indication: Pain
     Dosage: UNK
     Route: 065
  15. TEMOZOLOMIDE [Suspect]
     Active Substance: TEMOZOLOMIDE
     Indication: Neuroblastoma recurrent
     Dosage: UNK
     Route: 065

REACTIONS (12)
  - Malignant cranial nerve neoplasm [Fatal]
  - Anaemia [Fatal]
  - Fatigue [Fatal]
  - Leukocytosis [Fatal]
  - Metastases to liver [Fatal]
  - Metastases to spine [Fatal]
  - Nerve compression [Fatal]
  - Neuroblastoma recurrent [Fatal]
  - Off label use [Fatal]
  - Pallor [Fatal]
  - Retro-orbital neoplasm [Fatal]
  - Thrombocytopenia [Fatal]
